FAERS Safety Report 7113262-7 (Version None)
Quarter: 2010Q4

REPORT INFORMATION
  Report Type: 
  Country: None (occurrence: None)
  Receive Date: 20101119
  Receipt Date: 20100427
  Transmission Date: 20110411
  Serious: No
  Sender: FDA-Public Use
  Company Number: A0856898A

PATIENT
  Sex: Female

DRUGS (3)
  1. WELLBUTRIN SR [Suspect]
     Indication: DEPRESSION
     Dosage: 100MG TWICE PER DAY
     Route: 048
     Dates: start: 20040101
  2. VITAMINS [Concomitant]
  3. VITAMIN D [Concomitant]

REACTIONS (3)
  - EAR PAIN [None]
  - HEADACHE [None]
  - TINNITUS [None]
